FAERS Safety Report 25928277 (Version 1)
Quarter: 2025Q4

REPORT INFORMATION
  Report Type: Spontaneous
  Country: US (occurrence: US)
  Receive Date: 20251016
  Receipt Date: 20251016
  Transmission Date: 20260117
  Serious: Yes (Hospitalization, Other)
  Sender: Steriscience PTE
  Company Number: US-STERISCIENCE B.V.-2025-ST-001557

PATIENT
  Age: 73 Year
  Sex: Female

DRUGS (8)
  1. VANCOMYCIN [Suspect]
     Active Substance: VANCOMYCIN
     Indication: Pneumonia
     Dosage: 1 GRAM, BID
     Route: 042
  2. VANCOMYCIN [Suspect]
     Active Substance: VANCOMYCIN
     Indication: Sepsis
     Dosage: RESTARTED 1 GRAM, BID
     Route: 042
  3. MEROPENEM [Suspect]
     Active Substance: MEROPENEM
     Indication: Pneumonia
     Dosage: 1 GRAM, Q8H
     Route: 042
  4. POLYMYXIN B [Concomitant]
     Active Substance: POLYMYXIN B
     Indication: Pneumonia acinetobacter
     Dosage: UNK, BID, UNK, DOSE: 800000 UNITS
     Route: 042
  5. MICAFUNGIN [Concomitant]
     Active Substance: MICAFUNGIN SODIUM
     Indication: Antifungal treatment
     Dosage: 100 MILLIGRAM, QD
     Route: 042
  6. NOREPINEPHRINE [Concomitant]
     Active Substance: NOREPINEPHRINE
     Indication: Hypotension
     Dosage: UNK
     Route: 065
  7. HYDROCORTISONE [Concomitant]
     Active Substance: HYDROCORTISONE
     Indication: Hypotension
     Dosage: UNK
     Route: 065
  8. LINEZOLID [Concomitant]
     Active Substance: LINEZOLID
     Indication: Pneumonia acinetobacter
     Dosage: 600 MILLIGRAM, BID
     Route: 042

REACTIONS (2)
  - Drug level above therapeutic [Unknown]
  - Drug ineffective [Unknown]
